FAERS Safety Report 25767567 (Version 1)
Quarter: 2025Q3

REPORT INFORMATION
  Report Type: Report from Study
  Country: US (occurrence: US)
  Receive Date: 20250905
  Receipt Date: 20250905
  Transmission Date: 20251020
  Serious: Yes (Hospitalization)
  Sender: ALEXION PHARMACEUTICALS
  Company Number: US-ASTRAZENECA-202507GLO029941US

PATIENT
  Age: 90 Year
  Sex: Female
  Weight: 67.5 kg

DRUGS (15)
  1. ACALABRUTINIB [Suspect]
     Active Substance: ACALABRUTINIB
     Indication: Chronic lymphocytic leukaemia (in remission)
     Dosage: 100 MILLIGRAM, BID
     Dates: start: 20241213
  2. ASPIRIN [Concomitant]
     Active Substance: ASPIRIN
  3. ATORVASTATIN [Concomitant]
     Active Substance: ATORVASTATIN
  4. LEVOTHYROXINE [Concomitant]
     Active Substance: LEVOTHYROXINE
  5. VITAMINS [Concomitant]
     Active Substance: VITAMINS
  6. TIMOLOL MALEATE [Concomitant]
     Active Substance: TIMOLOL MALEATE
  7. VITAMIN D [Concomitant]
     Active Substance: VITAMIN D NOS
  8. Senior [Concomitant]
  9. KEPPRA [Concomitant]
     Active Substance: LEVETIRACETAM
  10. ASPIRIN [Concomitant]
     Active Substance: ASPIRIN
  11. BENZONATATE [Concomitant]
     Active Substance: BENZONATATE
  12. MUCUS [Concomitant]
     Active Substance: GUAIFENESIN
  13. ISOSORBIDE DINITRATE [Concomitant]
     Active Substance: ISOSORBIDE DINITRATE
  14. METOPROLOL SUCCINATE [Concomitant]
     Active Substance: METOPROLOL SUCCINATE
  15. SPIRONOLACTONE [Concomitant]
     Active Substance: SPIRONOLACTONE

REACTIONS (2)
  - Myocardial infarction [Unknown]
  - Pneumonia [Unknown]
